FAERS Safety Report 10921811 (Version 1)
Quarter: 2015Q1

REPORT INFORMATION
  Report Type: Report from Study
  Country: US (occurrence: US)
  Receive Date: 20150317
  Receipt Date: 20150317
  Transmission Date: 20150721
  Serious: Yes (Hospitalization, Other)
  Sender: FDA-Public Use
  Company Number: US-GILEAD-2015-0142422

PATIENT
  Age: 55 Year
  Sex: Female

DRUGS (12)
  1. BONIVA [Concomitant]
     Active Substance: IBANDRONATE SODIUM
  2. TYVASO [Suspect]
     Active Substance: TREPROSTINIL
     Indication: PRODUCT USED FOR UNKNOWN INDICATION
     Route: 065
  3. ADCIRCA [Suspect]
     Active Substance: TADALAFIL
     Indication: PRODUCT USED FOR UNKNOWN INDICATION
     Route: 065
  4. DHEA [Concomitant]
     Active Substance: DEHYDROEPIANDROSTERONE-3-SULFATE SODIUM
  5. RYTHMOL [Concomitant]
     Active Substance: PROPAFENONE HYDROCHLORIDE
  6. AMBRISENTAN [Suspect]
     Active Substance: AMBRISENTAN
     Indication: PULMONARY HYPERTENSION
     Dosage: 10 MG, QD
     Route: 065
     Dates: start: 20110509
  7. DUREZOL [Concomitant]
     Active Substance: DIFLUPREDNATE
  8. SUCRALFATE. [Concomitant]
     Active Substance: SUCRALFATE
  9. BESIVANCE                          /06324101/ [Concomitant]
  10. NEVANAC [Concomitant]
     Active Substance: NEPAFENAC
  11. CARDIZEM [Concomitant]
     Active Substance: DILTIAZEM HYDROCHLORIDE
  12. TESSALON [Concomitant]
     Active Substance: BENZONATATE

REACTIONS (2)
  - Systemic lupus erythematosus [Recovered/Resolved]
  - Respiratory distress [Recovered/Resolved]
